FAERS Safety Report 4887428-0 (Version None)
Quarter: 2006Q1

REPORT INFORMATION
  Report Type: 
  Country: None (occurrence: None)
  Receive Date: 20060123
  Receipt Date: 20060116
  Transmission Date: 20060701
  Serious: Yes (Other)
  Sender: FDA-Public Use
  Company Number: PHFR2006GB00570

PATIENT
  Age: 64 Year
  Sex: Female

DRUGS (1)
  1. TERBINAFINE HCL [Suspect]
     Indication: ONYCHOMYCOSIS
     Dosage: 250MG/DAY
     Route: 048
     Dates: start: 20051011, end: 20051219

REACTIONS (5)
  - DERMATITIS ALLERGIC [None]
  - LOWER RESPIRATORY TRACT INFECTION [None]
  - NEUTROPENIA [None]
  - PURPURA [None]
  - WHITE BLOOD CELL COUNT DECREASED [None]
